FAERS Safety Report 6253291-9 (Version None)
Quarter: 2009Q2

REPORT INFORMATION
  Report Type: 
  Country: None (occurrence: None)
  Receive Date: 20090626
  Receipt Date: 20081111
  Transmission Date: 20091009
  Serious: Yes (Other)
  Sender: FDA-Public Use
  Company Number: 596952

PATIENT
  Age: 77 Year
  Sex: Male

DRUGS (6)
  1. XELODA [Suspect]
     Indication: COLON CANCER
     Dosage: 4 GRAM DAILY ORAL
     Route: 048
     Dates: start: 20080509
  2. NORVASC [Concomitant]
  3. LASIX [Concomitant]
  4. COZAAR [Concomitant]
  5. LIPITOR [Concomitant]
  6. MULTIVITAMIN [Concomitant]

REACTIONS (2)
  - DIARRHOEA [None]
  - PALMAR-PLANTAR ERYTHRODYSAESTHESIA SYNDROME [None]
